FAERS Safety Report 5190495-0 (Version None)
Quarter: 2006Q4

REPORT INFORMATION
  Report Type: 
  Country: None (occurrence: None)
  Receive Date: 20061222
  Receipt Date: 20061107
  Transmission Date: 20070319
  Serious: Yes (Hospitalization)
  Sender: FDA-Public Use
  Company Number: JP-JPN-A200604772

PATIENT
  Age: 87 Year
  Sex: Female
  Weight: 51 kg

DRUGS (6)
  1. VALTREX [Suspect]
     Indication: HERPES ZOSTER
     Dosage: 1000MG THREE TIMES PER DAY
     Route: 048
     Dates: start: 20061024, end: 20061030
  2. LOXONIN [Suspect]
     Indication: HERPES ZOSTER
     Dosage: 60MG TWICE PER DAY
     Route: 065
     Dates: start: 20061024, end: 20061030
  3. MARZULENE [Concomitant]
     Indication: GASTRITIS
     Dosage: 1MG PER DAY
     Route: 048
     Dates: start: 20061024, end: 20061030
  4. TANATRIL [Concomitant]
     Indication: HYPERTENSION
     Dosage: 5MG PER DAY
     Route: 048
     Dates: start: 20000209
  5. NORVASC [Concomitant]
     Indication: HYPERTENSION
     Route: 048
     Dates: start: 19970709
  6. LIPITOR [Concomitant]
     Indication: HYPERLIPIDAEMIA
     Dosage: 10MG PER DAY
     Route: 048
     Dates: start: 20020626

REACTIONS (10)
  - ANOREXIA [None]
  - BLOOD CHLORIDE INCREASED [None]
  - BLOOD CREATINE INCREASED [None]
  - BLOOD UREA INCREASED [None]
  - DECREASED APPETITE [None]
  - DIARRHOEA [None]
  - DIZZINESS [None]
  - MALAISE [None]
  - NAUSEA [None]
  - RENAL IMPAIRMENT [None]
